FAERS Safety Report 5817320-6 (Version None)
Quarter: 2008Q3

REPORT INFORMATION
  Report Type: 
  Country: None (occurrence: None)
  Receive Date: 20080722
  Receipt Date: 20080709
  Transmission Date: 20090109
  Serious: Yes (Hospitalization)
  Sender: FDA-Public Use
  Company Number: GB-AVENTIS-200816738GDDC

PATIENT
  Age: 83 Year
  Sex: Female
  Weight: 37 kg

DRUGS (7)
  1. EUGLUCON [Suspect]
  2. LANIRAPID [Suspect]
  3. LOSARTAN POTASSIUM [Suspect]
  4. ACETOHEXAMIDE [Suspect]
  5. AMISALIN [Suspect]
  6. NIFEDIPINE [Suspect]
  7. ASPIRIN [Suspect]

REACTIONS (4)
  - CARDIAC FAILURE [None]
  - CARDIOACTIVE DRUG LEVEL INCREASED [None]
  - ELECTROCARDIOGRAM QT PROLONGED [None]
  - SYNCOPE [None]
